FAERS Safety Report 8573002-1 (Version None)
Quarter: 2012Q3

REPORT INFORMATION
  Report Type: 
  Country: None (occurrence: None)
  Receive Date: 20120806
  Receipt Date: 20120802
  Transmission Date: 20120928
  Serious: Yes (Other)
  Sender: FDA-Public Use
  Company Number: US-PFIZER INC-2012188541

PATIENT
  Sex: Male

DRUGS (2)
  1. GEODON [Suspect]
     Dosage: UNK
  2. ZIPRASIDONE HCL [Suspect]
     Dosage: UNK
     Dates: start: 20120101

REACTIONS (2)
  - PSYCHOTIC DISORDER [None]
  - DRUG EFFECT DECREASED [None]
